FAERS Safety Report 11916821 (Version 3)
Quarter: 2016Q2

REPORT INFORMATION
  Report Type: Spontaneous
  Country: US (occurrence: US)
  Receive Date: 20160114
  Receipt Date: 20160517
  Transmission Date: 20160815
  Serious: No
  Sender: FDA-Public Use
  Company Number: US-PFIZER INC-2015475619

PATIENT
  Age: 33 Year
  Sex: Female
  Weight: 41 kg

DRUGS (7)
  1. IBRANCE [Suspect]
     Active Substance: PALBOCICLIB
     Dosage: 100 MG, CYCLIC (Q DAILY FOR 21 DAYS REST FOR 7 DAYS AND RESTART CYCLE #21)
     Route: 048
  2. IBRANCE [Suspect]
     Active Substance: PALBOCICLIB
     Indication: BREAST CANCER METASTATIC
     Dosage: 125 MG, DAILY WITH FOOD 21 DAYS ON AND 7 DAYS OFF
     Route: 048
     Dates: start: 20151226
  3. MYLANTA [Concomitant]
     Active Substance: ALUMINUM HYDROXIDE\DIMETHICONE\MAGNESIUM HYDROXIDE
     Dosage: UNK (95CC)
  4. BENADRYL [Concomitant]
     Active Substance: DIPHENHYDRAMINE HYDROCHLORIDE
     Dosage: UNK (45CC)
  5. LETROZOLE. [Concomitant]
     Active Substance: LETROZOLE
     Indication: BREAST CANCER
     Dosage: 2.5 MG, 1X/DAY
     Route: 048
     Dates: start: 20151216
  6. LIDOCAINE. [Concomitant]
     Active Substance: LIDOCAINE
     Dosage: 2 %, UNK (10CC)
  7. NYSTATIN. [Concomitant]
     Active Substance: NYSTATIN
     Dosage: UNK (80CC)

REACTIONS (4)
  - Dysphagia [Unknown]
  - Foreign body [Not Recovered/Not Resolved]
  - Nausea [Unknown]
  - Product size issue [Unknown]

NARRATIVE: CASE EVENT DATE: 20151226
